FAERS Safety Report 10087023 (Version 5)
Quarter: 2014Q2

REPORT INFORMATION
  Report Type: Spontaneous
  Country: US (occurrence: US)
  Receive Date: 20140418
  Receipt Date: 20140627
  Transmission Date: 20141212
  Serious: Yes (Hospitalization, Disabling, Other)
  Sender: FDA-Public Use
  Company Number: US-009507513-1108USA01927

PATIENT
  Sex: Female
  Weight: 58.96 kg

DRUGS (2)
  1. FOSAMAX [Suspect]
     Indication: OSTEOPOROSIS
     Dosage: 70 MG, UNK
     Route: 048
     Dates: start: 2004, end: 2006
  2. FOSAMAX [Suspect]
     Indication: OSTEOPENIA

REACTIONS (76)
  - Jaw disorder [Not Recovered/Not Resolved]
  - Ostectomy [Unknown]
  - Sequestrectomy [Unknown]
  - Osteoarthritis [Unknown]
  - Intervertebral disc operation [Unknown]
  - Hip arthroplasty [Unknown]
  - Haemorrhagic anaemia [Recovering/Resolving]
  - Device failure [Unknown]
  - Hip arthroplasty [Unknown]
  - Device dislocation [Unknown]
  - Hip arthroplasty [Unknown]
  - Joint dislocation reduction [Unknown]
  - Fluid overload [Unknown]
  - Carpal tunnel syndrome [Unknown]
  - Nerve compression [Unknown]
  - Wound dehiscence [Unknown]
  - Peripheral nerve decompression [Unknown]
  - Tendon operation [Unknown]
  - Joint dislocation [Unknown]
  - Hip arthroplasty [Unknown]
  - Osteonecrosis of jaw [Not Recovered/Not Resolved]
  - Exposed bone in jaw [Unknown]
  - Bone lesion excision [Recovered/Resolved]
  - Dental caries [Unknown]
  - Tooth fracture [Unknown]
  - Impaired healing [Unknown]
  - Hypertension [Unknown]
  - Oral disorder [Unknown]
  - Intervertebral disc degeneration [Unknown]
  - Vertebral foraminal stenosis [Unknown]
  - Fall [Unknown]
  - Injury [Unknown]
  - Neurectomy [Unknown]
  - Drug dependence [Unknown]
  - Benign tumour excision [Unknown]
  - Stent placement [Unknown]
  - Hiatus hernia [Unknown]
  - Coronary artery disease [Unknown]
  - Breast lump removal [Unknown]
  - Tumour excision [Unknown]
  - Diffuse vasculitis [Unknown]
  - Appendicectomy [Unknown]
  - Hysterectomy [Unknown]
  - Bronchitis [Unknown]
  - Arrhythmia [Unknown]
  - Fibrocystic breast disease [Unknown]
  - Peptic ulcer [Unknown]
  - Lung infiltration [Unknown]
  - Migraine [Unknown]
  - Urinary tract infection [Unknown]
  - Hypotension [Unknown]
  - Bronchial hyperreactivity [Unknown]
  - Fibromyalgia [Unknown]
  - Hypothyroidism [Unknown]
  - Treatment noncompliance [Unknown]
  - Weight increased [Unknown]
  - Device dislocation [Unknown]
  - Platelet count decreased [Unknown]
  - Petechiae [Not Recovered/Not Resolved]
  - Device dislocation [Unknown]
  - Depression [Unknown]
  - Peripheral swelling [Unknown]
  - Suture related complication [Unknown]
  - Oral infection [Unknown]
  - Impaired healing [Unknown]
  - Bursitis [Unknown]
  - Back pain [Unknown]
  - Heart rate irregular [Unknown]
  - Henoch-Schonlein purpura [Unknown]
  - Arthropathy [Unknown]
  - Device defective [Unknown]
  - Osteomyelitis [Unknown]
  - Gastrooesophageal reflux disease [Unknown]
  - Pain in extremity [Unknown]
  - Arthralgia [Unknown]
  - Arthralgia [Unknown]
